FAERS Safety Report 16222710 (Version 2)
Quarter: 2019Q2

REPORT INFORMATION
  Report Type: Spontaneous
  Country: US (occurrence: US)
  Receive Date: 20190422
  Receipt Date: 20190624
  Transmission Date: 20190711
  Serious: No
  Sender: FDA-Public Use
  Company Number: US-PFIZER INC-2019167733

PATIENT
  Age: 43 Year
  Sex: Female

DRUGS (2)
  1. EUCRISA [Suspect]
     Active Substance: CRISABOROLE
     Indication: ECZEMA
     Dosage: UNK, 2X/DAY (60GM 2% TWICE DAILY )
     Dates: start: 201903
  2. TRIAMCINOLONE [TRIAMCINOLONE ACETONIDE] [Concomitant]
     Dosage: UNK UNK, 2X/DAY  (0.5% OINTMENT 15GM  AS OF 29APR2019 TWICE DAILY BETWEEN USE OF EUCRISA)
     Dates: start: 20190429

REACTIONS (1)
  - Therapeutic product effect incomplete [Unknown]

NARRATIVE: CASE EVENT DATE: 201903
